FAERS Safety Report 7893275-8 (Version None)
Quarter: 2011Q4

REPORT INFORMATION
  Report Type: 
  Country: None (occurrence: None)
  Receive Date: 20111104
  Receipt Date: 20111027
  Transmission Date: 20120403
  Serious: Yes (Hospitalization)
  Sender: FDA-Public Use
  Company Number: GB-JNJFOC-20111013161

PATIENT
  Sex: Female

DRUGS (1)
  1. RISPERDAL CONSTA [Suspect]
     Indication: PRODUCT USED FOR UNKNOWN INDICATION
     Route: 030

REACTIONS (10)
  - ASTHENIA [None]
  - EPISTAXIS [None]
  - MUSCLE SPASMS [None]
  - SPEECH DISORDER [None]
  - MUSCULOSKELETAL STIFFNESS [None]
  - THIRST [None]
  - ARTHRALGIA [None]
  - VISION BLURRED [None]
  - MIGRAINE [None]
  - APPETITE DISORDER [None]
